FAERS Safety Report 6634716-3 (Version None)
Quarter: 2010Q1

REPORT INFORMATION
  Report Type: 
  Country: None (occurrence: None)
  Receive Date: 20100315
  Receipt Date: 20100301
  Transmission Date: 20100710
  Serious: Yes (Hospitalization, Other)
  Sender: FDA-Public Use
  Company Number: US-ELI_LILLY_AND_COMPANY-US201003001180

PATIENT
  Age: 81 Year
  Sex: Female

DRUGS (13)
  1. FORTEO [Suspect]
     Indication: SCOLIOSIS
     Dosage: 20 UG, DAILY (1/D)
     Route: 058
     Dates: start: 20090129, end: 20091015
  2. FORTEO [Suspect]
     Dosage: 20 UG, DAILY (1/D)
     Route: 058
     Dates: start: 20091030
  3. TOVIAZ [Concomitant]
     Dosage: UNK, DAILY (1/D)
  4. DEXLANSOPRAZOLE [Concomitant]
  5. SINGULAIR [Concomitant]
     Dosage: UNK, DAILY (1/D)
  6. SYMBICORT [Concomitant]
     Dosage: UNK, AS NEEDED
  7. NASACORT [Concomitant]
     Dosage: UNK, AS NEEDED
  8. MULTI-VITAMIN [Concomitant]
     Dosage: UNK, DAILY (1/D)
  9. CALTRATE [Concomitant]
     Dosage: UNK, DAILY (1/D)
  10. POTASSIUM CHLORIDE [Concomitant]
     Dosage: UNK, DAILY (1/D)
  11. VITAMIN D3 [Concomitant]
     Dosage: UNK, DAILY (1/D)
  12. GLUCOSAMINE [Concomitant]
     Dosage: UNK, DAILY (1/D)
  13. BIOTIN [Concomitant]
     Dosage: UNK, DAILY (1/D)

REACTIONS (5)
  - ABDOMINAL DISCOMFORT [None]
  - FALL [None]
  - HIP FRACTURE [None]
  - MOVEMENT DISORDER [None]
  - OFF LABEL USE [None]
